FAERS Safety Report 6831618-4 (Version None)
Quarter: 2010Q3

REPORT INFORMATION
  Report Type: 
  Country: None (occurrence: None)
  Receive Date: 20100707
  Receipt Date: 20100625
  Transmission Date: 20110219
  Serious: Yes (Death, Hospitalization, Other)
  Sender: FDA-Public Use
  Company Number: 7009294

PATIENT
  Age: 48 Year
  Sex: Female

DRUGS (3)
  1. REBIF [Suspect]
     Indication: MULTIPLE SCLEROSIS
     Dosage: 44 MCG; 44 MCG
     Dates: start: 20060321, end: 20091113
  2. REBIF [Suspect]
     Indication: MULTIPLE SCLEROSIS
     Dosage: 44 MCG; 44 MCG
     Dates: start: 20091123, end: 20091125
  3. UNSPECIFIED MEDICATION FOR HIGH BLOOD PRESSURE (ANTIHYPERTENSIVES) [Concomitant]

REACTIONS (7)
  - ANGIOPATHY [None]
  - CEREBROVASCULAR ACCIDENT [None]
  - CONVULSION [None]
  - DIALYSIS [None]
  - HYPERTENSION [None]
  - RENAL FAILURE [None]
  - TREATMENT FAILURE [None]
